FAERS Safety Report 6932589-2 (Version None)
Quarter: 2010Q3

REPORT INFORMATION
  Report Type: 
  Country: None (occurrence: None)
  Receive Date: 20100817
  Receipt Date: 20100802
  Transmission Date: 20110219
  Serious: Yes (Hospitalization, Other)
  Sender: FDA-Public Use
  Company Number: 2010AC000299

PATIENT
  Age: 63 Year
  Sex: Female

DRUGS (15)
  1. DIGOXIN [Suspect]
     Dosage: PO, 0.125 MG; QD; PO
     Route: 048
     Dates: start: 20060301, end: 20080601
  2. DIGOXIN [Suspect]
     Dosage: PO, 0.125 MG; QD; PO
     Route: 048
     Dates: start: 20060101
  3. *AMIODARONE [Concomitant]
  4. CALCIUM [Concomitant]
  5. VITAMIN D [Concomitant]
  6. ENALAPRIL MALEATE [Concomitant]
  7. FOSAMAX [Concomitant]
  8. FUROSEMIDE [Concomitant]
  9. LOVASTATIN [Concomitant]
  10. NEURONTIN [Concomitant]
  11. OXYBUTYNIN CHLORIDE [Concomitant]
  12. TOPROL-XL [Concomitant]
  13. WARFARIN SODIUM [Concomitant]
  14. LOPRESSOR [Concomitant]
  15. NITROGLYCERIN [Concomitant]

REACTIONS (29)
  - ANXIETY [None]
  - AORTIC VALVE INCOMPETENCE [None]
  - ASTHENIA [None]
  - ATRIAL FIBRILLATION [None]
  - ATRIOVENTRICULAR BLOCK FIRST DEGREE [None]
  - BLOOD THYROID STIMULATING HORMONE DECREASED [None]
  - BRAIN NATRIURETIC PEPTIDE INCREASED [None]
  - CARDIAC DISORDER [None]
  - CARDIAC FAILURE CONGESTIVE [None]
  - CARDIOACTIVE DRUG LEVEL DECREASED [None]
  - CARDIOACTIVE DRUG LEVEL INCREASED [None]
  - CHEST PAIN [None]
  - DYSPNOEA [None]
  - ECONOMIC PROBLEM [None]
  - ELECTROCARDIOGRAM T WAVE ABNORMAL [None]
  - FATIGUE [None]
  - GLOMERULAR FILTRATION RATE DECREASED [None]
  - LEFT ATRIAL DILATATION [None]
  - MITRAL VALVE STENOSIS [None]
  - MULTIPLE INJURIES [None]
  - PAIN [None]
  - PROCEDURAL PAIN [None]
  - PULMONARY HYPERTENSION [None]
  - PULMONARY VALVE INCOMPETENCE [None]
  - RHEUMATIC HEART DISEASE [None]
  - TACHYCARDIA [None]
  - TREATMENT FAILURE [None]
  - TRICUSPID VALVE INCOMPETENCE [None]
  - WHITE BLOOD CELL COUNT INCREASED [None]
